FAERS Safety Report 13004704 (Version 3)
Quarter: 2017Q1

REPORT INFORMATION
  Report Type: Spontaneous
  Country: GB (occurrence: GB)
  Receive Date: 20161207
  Receipt Date: 20170120
  Transmission Date: 20170428
  Serious: Yes (Hospitalization, Other)
  Sender: FDA-Public Use
  Company Number: XA-009507513-1612XAA002537

PATIENT
  Age: 79 Year
  Sex: Female

DRUGS (34)
  1. MONOCLONAL ANTIBODY (UNSPECIFIED) [Suspect]
     Active Substance: UNSPECIFIED INGREDIENT
     Indication: PLASMA CELL MYELOMA
     Dosage: ON DAYS 1,8,15,22,29,36 (1220 MG)
     Route: 042
     Dates: start: 20151201, end: 20151229
  2. ACYCLOVIR. [Concomitant]
     Active Substance: ACYCLOVIR
     Indication: ANTIVIRAL PROPHYLAXIS
     Dosage: 400 MG, 1 D
     Route: 048
     Dates: start: 20151201
  3. ACETAMINOPHEN (+) DIHYDROCODEINE BITARTRATE [Concomitant]
     Active Substance: ACETAMINOPHEN\DIHYDROCODEINE BITARTRATE
     Indication: ARTHRALGIA
     Dosage: UNKNOWN, 4 IN 1 D
     Route: 048
     Dates: start: 2015
  4. DALTEPARIN SODIUM [Concomitant]
     Active Substance: DALTEPARIN SODIUM
     Indication: THROMBOSIS PROPHYLAXIS
     Dosage: 5000 IU, 1 D
     Route: 058
     Dates: start: 20160308, end: 20160315
  5. ACETAMINOPHEN. [Concomitant]
     Active Substance: ACETAMINOPHEN
     Indication: PNEUMONIA
     Dosage: 1 GM, 1 AS REQUIRED
     Route: 048
     Dates: start: 20160101
  6. TAZOCIN (PIPERACILLIN SODIUM (+) TAZOBACTAM SODIUM) [Concomitant]
     Indication: SEPSIS
     Dosage: UNKNOWN (4 .5 GM)
     Route: 042
     Dates: start: 20160316, end: 20160316
  7. DEXAMETHASONE. [Suspect]
     Active Substance: DEXAMETHASONE
     Indication: PLASMA CELL MYELOMA
     Dosage: ON DAY 1 (20 MG)
     Route: 048
     Dates: start: 20151201, end: 20151201
  8. MELPHALAN [Suspect]
     Active Substance: MELPHALAN
     Dosage: ON DAYS 1-4 (8 MG)
     Route: 048
     Dates: start: 20160223, end: 20160226
  9. MK-9355 [Concomitant]
     Active Substance: UNSPECIFIED INGREDIENT
     Indication: GOUT
     Dosage: 30 MG, 1 D
     Route: 048
     Dates: start: 20151201
  10. AMOXICILLIN (+) CLAVULANATE POTASSIUM [Concomitant]
     Active Substance: AMOXICILLIN\CLAVULANATE POTASSIUM
     Indication: INFECTION PROPHYLAXIS
     Dosage: 625 MG, 3 IN 1 D
     Route: 048
     Dates: start: 20151228, end: 20151231
  11. DOXAZOSIN [Concomitant]
     Active Substance: DOXAZOSIN\DOXAZOSIN MESYLATE
     Indication: HYPERTENSION
     Dosage: UNK
     Route: 048
  12. ACETAMINOPHEN. [Concomitant]
     Active Substance: ACETAMINOPHEN
     Dosage: 1 GM, 4 IN 1 D
     Route: 048
     Dates: start: 2005, end: 20160101
  13. PREDNISONE. [Suspect]
     Active Substance: PREDNISONE
     Indication: PLASMA CELL MYELOMA
     Dosage: UNKNOWN (105 MG)
     Route: 048
     Dates: start: 20160114, end: 20160116
  14. VELCADE [Suspect]
     Active Substance: BORTEZOMIB
     Indication: PLASMA CELL MYELOMA
     Dosage: ON DAYS 1,4,11,22,25,29,32 (2.25 MG)
     Route: 058
     Dates: start: 20151201, end: 20160301
  15. MELPHALAN [Suspect]
     Active Substance: MELPHALAN
     Indication: PLASMA CELL MYELOMA
     Dosage: ON DAYS 1-4 (16 MG)
     Route: 048
     Dates: start: 20151201, end: 20161204
  16. LACTULOSE. [Concomitant]
     Active Substance: LACTULOSE
     Indication: CONSTIPATION
     Dosage: 15 MG, 2 IN 1 D
     Route: 048
     Dates: start: 20150225
  17. LANSOPRAZOLE. [Concomitant]
     Active Substance: LANSOPRAZOLE
     Indication: PROPHYLAXIS AGAINST GASTROINTESTINAL ULCER
     Dosage: 30-60MG (30 MG, 1 D)
     Route: 048
     Dates: start: 2005
  18. ACETAMINOPHEN. [Concomitant]
     Active Substance: ACETAMINOPHEN
     Dosage: 1 GM, 4 IN 1 D
     Route: 048
     Dates: start: 2005, end: 20160101
  19. SEPTRIN [Concomitant]
     Active Substance: SULFAMETHOXAZOLE\TRIMETHOPRIM
     Indication: INFECTION PROPHYLAXIS
     Dosage: 480 MG, 1 D
     Route: 048
     Dates: start: 201602
  20. BENDROFLUMETHIAZIDE [Concomitant]
     Active Substance: BENDROFLUMETHIAZIDE
     Indication: HYPERTENSION
     Dosage: 5 MG, 1 D
     Route: 048
     Dates: start: 201512
  21. ACETAMINOPHEN. [Concomitant]
     Active Substance: ACETAMINOPHEN
     Indication: SEPSIS
     Dosage: 1 GM, UNK
     Route: 042
     Dates: start: 20160307, end: 20160307
  22. PERINDOPRIL [Concomitant]
     Active Substance: PERINDOPRIL
     Indication: HYPERTENSION
     Dosage: 8 MG, 1 D
     Route: 048
     Dates: end: 20160108
  23. TAZOCIN (PIPERACILLIN SODIUM (+) TAZOBACTAM SODIUM) [Concomitant]
     Dosage: UNKNOWN (4 .5 GM)
     Route: 042
     Dates: start: 20160307, end: 20160307
  24. PREDNISONE. [Suspect]
     Active Substance: PREDNISONE
     Dosage: UNKNOWN (105 MG)
     Route: 048
     Dates: start: 20151202, end: 20151204
  25. DALTEPARIN SODIUM [Concomitant]
     Active Substance: DALTEPARIN SODIUM
     Dosage: 5000 IU, 1 D
     Route: 058
     Dates: start: 20160101, end: 20160104
  26. MELPHALAN [Suspect]
     Active Substance: MELPHALAN
     Dosage: ON DAYS 1-4 (12 MG)
     Route: 048
     Dates: start: 20160113, end: 20160116
  27. FERROUS FUMARATE [Concomitant]
     Active Substance: FERROUS FUMARATE
     Indication: IRON DEFICIENCY
     Dosage: 210 MG, 2 IN 1 D
     Route: 048
     Dates: start: 2010
  28. ACETAMINOPHEN. [Concomitant]
     Active Substance: ACETAMINOPHEN
     Indication: ARTHRALGIA
     Dosage: 1 GM, 1 AS REQUIRED
     Route: 048
     Dates: start: 20160101
  29. PREDNISONE. [Suspect]
     Active Substance: PREDNISONE
     Dosage: UNKNOWN (105 MG)
     Route: 048
     Dates: start: 20160224, end: 20160226
  30. AMLODIPINE [Concomitant]
     Active Substance: AMLODIPINE BESYLATE
     Indication: HYPERTENSION
     Dosage: 5 MG, 1 D
     Route: 048
  31. DIHYDROCODEINE [Concomitant]
     Active Substance: DIHYDROCODEINE
     Indication: ARTHRALGIA
     Dosage: 30-60MG (UNKNOWN, 4 IN 1 D)
     Route: 048
     Dates: start: 20150225
  32. FUROSEMIDE. [Concomitant]
     Active Substance: FUROSEMIDE
     Indication: OEDEMA PERIPHERAL
     Dosage: 40 MG, 1 D
     Route: 048
     Dates: start: 20160202
  33. SODIUM CHLORIDE. [Concomitant]
     Active Substance: SODIUM CHLORIDE
     Indication: SEPSIS
     Dosage: UNKNOWN (1000 ML)
     Route: 042
     Dates: start: 20160308, end: 20160308
  34. TAZOCIN (PIPERACILLIN SODIUM (+) TAZOBACTAM SODIUM) [Concomitant]
     Dosage: 4.5 GM, 3 IN 1 D
     Route: 042
     Dates: start: 20160308, end: 20160315

REACTIONS (7)
  - Pneumonia [Unknown]
  - Anaemia [Recovered/Resolved]
  - Arthralgia [Unknown]
  - Sepsis [Unknown]
  - Acute kidney injury [Recovered/Resolved]
  - Eye pruritus [Unknown]
  - Oedema peripheral [Unknown]

NARRATIVE: CASE EVENT DATE: 20151201
